FAERS Safety Report 9152127 (Version 1)
Quarter: 2013Q1

REPORT INFORMATION
  Report Type: Spontaneous
  Country: BR (occurrence: BR)
  Receive Date: 20130308
  Receipt Date: 20130308
  Transmission Date: 20140127
  Serious: Yes (Hospitalization)
  Sender: FDA-Public Use
  Company Number: BR-ASTRAZENECA-2013SE13835

PATIENT
  Age: 74 Year
  Sex: Female
  Weight: 72 kg

DRUGS (9)
  1. ATACAND [Suspect]
     Indication: HYPERTENSION
     Route: 048
  2. ANASTROZOLE [Suspect]
     Indication: BREAST CANCER FEMALE
     Route: 048
     Dates: start: 201210
  3. SELOZOK [Suspect]
     Indication: HYPERTENSION
     Dosage: ONE TABLET BY MORNING AND 1/4 TABLET AT NIGHT
     Route: 048
     Dates: start: 201212
  4. CITALOR [Concomitant]
     Indication: BLOOD CHOLESTEROL INCREASED
     Route: 048
  5. ASPIRIN [Concomitant]
     Route: 048
  6. XARELTO [Concomitant]
     Route: 048
  7. MONOCORDIL [Concomitant]
     Route: 048
  8. LASIX [Concomitant]
     Route: 048
  9. SYNTHROID [Concomitant]
     Indication: HYPOTHYROIDISM
     Route: 048

REACTIONS (5)
  - Heart rate irregular [Recovered/Resolved]
  - Uterine cancer [Recovered/Resolved]
  - Breast cancer female [Recovered/Resolved]
  - Blood pressure fluctuation [Not Recovered/Not Resolved]
  - Arthralgia [Not Recovered/Not Resolved]
